FAERS Safety Report 12484500 (Version 1)
Quarter: 2016Q2

REPORT INFORMATION
  Report Type: Spontaneous
  Country: US (occurrence: None)
  Receive Date: 20160620
  Receipt Date: 20160620
  Transmission Date: 20160815
  Serious: Yes (Other)
  Sender: FDA-Public Use
  Company Number: None

PATIENT
  Age: 51 Year
  Sex: Female
  Weight: 77.11 kg

DRUGS (4)
  1. SPRIX [Suspect]
     Active Substance: KETOROLAC TROMETHAMINE
     Indication: MIGRAINE
     Dosage: 5 BOTTLES EVERY 6 HOURS INHALATION
     Route: 055
     Dates: start: 20160615, end: 20160616
  2. SUBLINGUAL B12 [Concomitant]
  3. LEVOTHYROXINE. [Concomitant]
     Active Substance: LEVOTHYROXINE
  4. PRO OMEGA [Concomitant]

REACTIONS (5)
  - Hypoaesthesia [None]
  - Speech disorder [None]
  - Chest pain [None]
  - Cognitive disorder [None]
  - Palpitations [None]

NARRATIVE: CASE EVENT DATE: 20160616
